FAERS Safety Report 9311674 (Version 7)
Quarter: 2013Q4

REPORT INFORMATION
  Report Type: Spontaneous
  Country: IT (occurrence: IT)
  Receive Date: 20130528
  Receipt Date: 20131021
  Transmission Date: 20140711
  Serious: Yes (Other)
  Sender: FDA-Public Use
  Company Number: IT-JNJFOC-20130515446

PATIENT
  Age: 61 Year
  Sex: Male

DRUGS (3)
  1. PALEXIA [Suspect]
     Indication: NEURALGIA
     Route: 048
     Dates: start: 20130226
  2. LEVOBREN [Suspect]
     Indication: NEURALGIA
     Route: 048
     Dates: start: 20130226
  3. CYMBALTA [Suspect]
     Indication: NEURALGIA
     Route: 048
     Dates: start: 20130223

REACTIONS (6)
  - Myoclonus [Recovered/Resolved]
  - Anxiety [Recovered/Resolved]
  - Dyspnoea [Recovered/Resolved]
  - Hypotension [Recovered/Resolved]
  - Respiratory disorder [Recovered/Resolved]
  - Hyperhidrosis [Recovered/Resolved]
